FAERS Safety Report 6776326-3 (Version None)
Quarter: 2010Q2

REPORT INFORMATION
  Report Type: 
  Country: None (occurrence: None)
  Receive Date: 20100617
  Receipt Date: 20100609
  Transmission Date: 20101027
  Serious: Yes (Other)
  Sender: FDA-Public Use
  Company Number: FR-ALLERGAN-1005723US

PATIENT
  Age: 72 Year
  Sex: Female

DRUGS (10)
  1. BOTOX [Suspect]
     Indication: MUSCLE SPASTICITY
     Dosage: 270 UNITS, SINGLE
     Route: 030
     Dates: start: 20091216, end: 20091216
  2. DURAGESIC-100 [Suspect]
     Indication: MUSCLE SPASTICITY
     Dosage: 12 A?G, Q1HR (1DF Q72H)
     Route: 062
     Dates: start: 20091008, end: 20091221
  3. STABLON [Concomitant]
     Indication: DEPRESSION
     Dosage: 25 MG, QD (12.5 X2)
     Route: 048
     Dates: start: 20090709
  4. EFFERALGAN [Concomitant]
     Indication: PAIN
     Dosage: 3 G, QD (2CAPSX500X3)
     Dates: start: 20090623
  5. PANTOPRAZOLE SODIUM [Concomitant]
     Indication: DYSPEPSIA
     Dosage: 20 MG, QD
     Route: 048
     Dates: start: 20090630
  6. PANTOPRAZOLE SODIUM [Concomitant]
     Indication: GASTRIC ULCER
  7. LEVOTHYROXINE SODIUM [Concomitant]
     Indication: DRUG USE FOR UNKNOWN INDICATION
     Dosage: 125 A?G, QD
  8. NEURONTIN [Concomitant]
     Indication: PARTIAL SEIZURES
     Dosage: UNK
     Dates: start: 20090820
  9. PERINDOPRIL [Concomitant]
     Indication: HYPERTENSION
     Dosage: 4.5 MG, QD
     Dates: start: 20090812
  10. TAHOR [Concomitant]
     Indication: DYSLIPIDAEMIA
     Dosage: 10 MG, QD

REACTIONS (3)
  - DRUG INTOLERANCE [None]
  - EPILEPSY [None]
  - GASTRIC DISORDER [None]
